FAERS Safety Report 10211278 (Version 1)
Quarter: 2014Q2

REPORT INFORMATION
  Report Type: Spontaneous
  Country: US (occurrence: US)
  Receive Date: 20140602
  Receipt Date: 20140602
  Transmission Date: 20141212
  Serious: Yes (Hospitalization)
  Sender: FDA-Public Use
  Company Number: US-GLAXOSMITHKLINE-A1074803A

PATIENT
  Age: 53 Year
  Sex: Male

DRUGS (2)
  1. ADVAIR [Suspect]
     Indication: ASTHMA
     Dosage: 1PUFF TWICE PER DAY
     Route: 065
  2. INHALATION OF UNKNOWN ORIGIN [Concomitant]

REACTIONS (5)
  - Oesophageal stenosis [Unknown]
  - Oesophageal infection [Unknown]
  - Dyspnoea [Recovered/Resolved]
  - Hiatus hernia [Not Recovered/Not Resolved]
  - Asthma [Unknown]
